FAERS Safety Report 9513258 (Version 1)
Quarter: 2013Q3

REPORT INFORMATION
  Report Type: Spontaneous
  Country: JP (occurrence: JP)
  Receive Date: 20130910
  Receipt Date: 20130910
  Transmission Date: 20140515
  Serious: Yes (Hospitalization, Other)
  Sender: FDA-Public Use
  Company Number: JP-ELI_LILLY_AND_COMPANY-JP201308009712

PATIENT
  Age: 79 Year
  Sex: Female

DRUGS (3)
  1. GEMZAR [Suspect]
     Indication: METASTASES TO LUNG
     Dosage: 800 MG/M2, OTHER
     Route: 042
  2. DOCETAXEL [Suspect]
     Indication: METASTASES TO LUNG
     Dosage: 60 MG/M2, OTHER
     Route: 042
  3. WARFARIN POTASSIUM [Concomitant]
     Indication: ATRIAL FIBRILLATION
     Route: 048

REACTIONS (6)
  - Interstitial lung disease [Unknown]
  - Acute respiratory distress syndrome [Recovering/Resolving]
  - Systemic inflammatory response syndrome [Unknown]
  - Disseminated intravascular coagulation [Recovering/Resolving]
  - Renal failure acute [Unknown]
  - Neutrophil count decreased [Unknown]
